FAERS Safety Report 11528761 (Version 2)
Quarter: 2015Q3

REPORT INFORMATION
  Report Type: Spontaneous
  Country: US (occurrence: US)
  Receive Date: 20150921
  Receipt Date: 20150928
  Transmission Date: 20151125
  Serious: No
  Sender: FDA-Public Use
  Company Number: US-ELI_LILLY_AND_COMPANY-US201509006197

PATIENT
  Sex: Male

DRUGS (1)
  1. FORTEO [Suspect]
     Active Substance: TERIPARATIDE
     Indication: OSTEOPOROSIS
     Dosage: UNK, QD
     Route: 065
     Dates: start: 20150913

REACTIONS (7)
  - Pain in extremity [Unknown]
  - Nausea [Unknown]
  - Feeling abnormal [Unknown]
  - Asthenia [Unknown]
  - Arthralgia [Unknown]
  - Product odour abnormal [Unknown]
  - Blood pressure fluctuation [Unknown]
